FAERS Safety Report 19803271 (Version 2)
Quarter: 2021Q4

REPORT INFORMATION
  Report Type: Spontaneous
  Country: JP (occurrence: JP)
  Receive Date: 20210908
  Receipt Date: 20211214
  Transmission Date: 20220303
  Serious: Yes (Death, Other)
  Sender: FDA-Public Use
  Company Number: JP-MICRO LABS LIMITED-ML2021-02149

PATIENT
  Age: 5 Decade
  Sex: Female
  Weight: 84.5 kg

DRUGS (9)
  1. CLOMIPRAMINE [Suspect]
     Active Substance: CLOMIPRAMINE
  2. LEVOMEPROMAZINE [Suspect]
     Active Substance: LEVOMEPROMAZINE
  3. PROMETHAZINE [Suspect]
     Active Substance: PROMETHAZINE HYDROCHLORIDE
  4. DEXTROMETHORPHAN HYDROBROMIDE [Suspect]
     Active Substance: DEXTROMETHORPHAN HYDROBROMIDE
  5. ESTAZOLAM [Suspect]
     Active Substance: ESTAZOLAM
  6. RISPERIDONE [Suspect]
     Active Substance: RISPERIDONE
  7. FLUNITRAZEPAM [Suspect]
     Active Substance: FLUNITRAZEPAM
  8. ACETAMINOPHEN [Suspect]
     Active Substance: ACETAMINOPHEN
  9. ALCOHOL [Suspect]
     Active Substance: ALCOHOL

REACTIONS (3)
  - Toxicity to various agents [Fatal]
  - Toxicity to various agents [Fatal]
  - Drug interaction [Fatal]
